FAERS Safety Report 6200253-3 (Version None)
Quarter: 2009Q2

REPORT INFORMATION
  Report Type: 
  Country: None (occurrence: None)
  Receive Date: 20090518
  Receipt Date: 20090413
  Transmission Date: 20091009
  Serious: No
  Sender: FDA-Public Use
  Company Number: WAES 0904USA01836

PATIENT
  Age: 66 Year
  Sex: Female
  Weight: 101.1521 kg

DRUGS (7)
  1. JANUVIA [Suspect]
     Dosage: 100 MG/DAILY/PO; 50 MG/PO
     Route: 048
     Dates: start: 20090304
  2. JANUVIA [Suspect]
     Dosage: 100 MG/DAILY/PO; 50 MG/PO
     Route: 048
     Dates: start: 20090318
  3. BENICAR HCT [Concomitant]
  4. FLEXERIL [Concomitant]
  5. LEVOXYL [Concomitant]
  6. LIPITOR [Concomitant]
  7. NEXIUM [Concomitant]

REACTIONS (2)
  - NASAL CONGESTION [None]
  - RASH [None]
